FAERS Safety Report 18536189 (Version 1)
Quarter: 2020Q4

REPORT INFORMATION
  Report Type: Report from Study
  Country: None (occurrence: US)
  Receive Date: 20201124
  Receipt Date: 20201124
  Transmission Date: 20210114
  Serious: Yes (Hospitalization, Other)
  Sender: FDA-Public Use
  Company Number: US-ABBVIE-20K-163-3657472-00

PATIENT
  Sex: Female

DRUGS (2)
  1. SYNTHROID [Suspect]
     Active Substance: LEVOTHYROXINE SODIUM
     Indication: PRODUCT USED FOR UNKNOWN INDICATION
     Route: 048
  2. CYTOMEL [Concomitant]
     Active Substance: LIOTHYRONINE SODIUM
     Indication: PRODUCT USED FOR UNKNOWN INDICATION

REACTIONS (13)
  - Haemorrhage [Unknown]
  - Thyroidectomy [Unknown]
  - Loss of consciousness [Recovered/Resolved]
  - Madarosis [Unknown]
  - Alopecia [Unknown]
  - Thyroid disorder [Unknown]
  - Dry skin [Unknown]
  - Fatigue [Unknown]
  - Small intestinal perforation [Unknown]
  - Sepsis [Unknown]
  - Stress [Unknown]
  - Weight increased [Unknown]
  - Pruritus [Unknown]

NARRATIVE: CASE EVENT DATE: 202003
